FAERS Safety Report 12678552 (Version 2)
Quarter: 2016Q3

REPORT INFORMATION
  Report Type: Spontaneous
  Country: US (occurrence: US)
  Receive Date: 20160823
  Receipt Date: 20160927
  Transmission Date: 20161109
  Serious: No
  Sender: FDA-Public Use
  Company Number: US-PFIZER INC-2016395239

PATIENT
  Sex: Female

DRUGS (11)
  1. DIPHENHYDRAMINE HCL [Suspect]
     Active Substance: DIPHENHYDRAMINE HYDROCHLORIDE
     Dosage: UNK
  2. CECLOR [Suspect]
     Active Substance: CEFACLOR
     Dosage: UNK
  3. TETRACYCLINE [Suspect]
     Active Substance: TETRACYCLINE
     Dosage: UNK
  4. AMOXICILLIN. [Suspect]
     Active Substance: AMOXICILLIN
     Dosage: UNK
  5. NAPROSYN [Suspect]
     Active Substance: NAPROXEN
     Dosage: UNK
  6. AMPICILLIN SODIUM. [Suspect]
     Active Substance: AMPICILLIN SODIUM
     Dosage: UNK
  7. POVIDONE-IODINE. [Suspect]
     Active Substance: POVIDONE-IODINE
     Dosage: UNK
  8. CELEBREX [Suspect]
     Active Substance: CELECOXIB
     Dosage: UNK
  9. BEXTRA [Suspect]
     Active Substance: VALDECOXIB
     Dosage: UNK
  10. MACRODANTIN [Suspect]
     Active Substance: NITROFURANTOIN
     Dosage: UNK
  11. VIOXX [Suspect]
     Active Substance: ROFECOXIB
     Dosage: UNK

REACTIONS (1)
  - Drug hypersensitivity [Unknown]
